FAERS Safety Report 20956028 (Version 2)
Quarter: 2022Q2

REPORT INFORMATION
  Report Type: Spontaneous
  Country: US (occurrence: None)
  Receive Date: 20220614
  Receipt Date: 20220615
  Transmission Date: 20220721
  Serious: No
  Sender: FDA-Public Use
  Company Number: US-MDD US Operations-MDD202201-000100

PATIENT
  Age: 77 Year
  Sex: Female
  Weight: 56.69 kg

DRUGS (7)
  1. APOKYN [Suspect]
     Active Substance: APOMORPHINE HYDROCHLORIDE
     Indication: Parkinson^s disease
     Dosage: NOT PROVIDED
     Dates: start: 202112
  2. APOKYN [Suspect]
     Active Substance: APOMORPHINE HYDROCHLORIDE
     Dates: start: 20220108
  3. APOKYN [Suspect]
     Active Substance: APOMORPHINE HYDROCHLORIDE
     Dates: start: 20220105, end: 202202
  4. CARBIDOPA\LEVODOPA [Concomitant]
     Active Substance: CARBIDOPA\LEVODOPA
     Dosage: 25/100 MG
  5. VITAMIN D [Concomitant]
     Active Substance: VITAMIN D NOS
     Dosage: 50,000 UNITS
  6. LOVASTATIN [Concomitant]
     Active Substance: LOVASTATIN
  7. ALENDRONATE SODIUM [Concomitant]
     Active Substance: ALENDRONATE SODIUM

REACTIONS (6)
  - Nausea [Recovering/Resolving]
  - Vomiting [Unknown]
  - Fatigue [Unknown]
  - Malaise [Recovered/Resolved]
  - Somnolence [Recovered/Resolved]
  - Therapy non-responder [Unknown]
